FAERS Safety Report 13364065 (Version 3)
Quarter: 2017Q2

REPORT INFORMATION
  Report Type: Spontaneous
  Country: US (occurrence: US)
  Receive Date: 20170323
  Receipt Date: 20170509
  Transmission Date: 20170830
  Serious: Yes (Hospitalization, Other)
  Sender: FDA-Public Use
  Company Number: US-JNJFOC-20170317344

PATIENT
  Age: 40 Year
  Sex: Male
  Weight: 125.19 kg

DRUGS (3)
  1. REMICADE [Suspect]
     Active Substance: INFLIXIMAB
     Indication: CROHN^S DISEASE
     Route: 042
     Dates: start: 20170223
  2. REMICADE [Suspect]
     Active Substance: INFLIXIMAB
     Indication: CROHN^S DISEASE
     Route: 042
     Dates: start: 201611
  3. REMICADE [Suspect]
     Active Substance: INFLIXIMAB
     Indication: CROHN^S DISEASE
     Route: 042
     Dates: start: 1998

REACTIONS (18)
  - Episcleritis [Recovered/Resolved]
  - Off label use [Unknown]
  - Asthenia [Recovering/Resolving]
  - Thrombosis [Not Recovered/Not Resolved]
  - Constipation [Not Recovered/Not Resolved]
  - Product use issue [Unknown]
  - Weight decreased [Unknown]
  - Blood pressure increased [Unknown]
  - Diarrhoea [Recovering/Resolving]
  - Dysarthria [Recovering/Resolving]
  - Adrenal insufficiency [Unknown]
  - Large intestine polyp [Unknown]
  - Alopecia [Unknown]
  - Dyspnoea [Recovering/Resolving]
  - IgA nephropathy [Not Recovered/Not Resolved]
  - Migraine [Unknown]
  - International normalised ratio abnormal [Not Recovered/Not Resolved]
  - Blood test abnormal [Not Recovered/Not Resolved]

NARRATIVE: CASE EVENT DATE: 1998
